FAERS Safety Report 21569654 (Version 1)
Quarter: 2022Q4

REPORT INFORMATION
  Report Type: Spontaneous
  Country: US (occurrence: US)
  Receive Date: 20221109
  Receipt Date: 20221109
  Transmission Date: 20230112
  Serious: Yes (Other)
  Sender: FDA-Public Use
  Company Number: US-AMGEN-USASP2022190071

PATIENT
  Age: 62 Year
  Sex: Male

DRUGS (1)
  1. FILGRASTIM [Suspect]
     Active Substance: FILGRASTIM
     Indication: Haematopoietic stem cell mobilisation
     Dosage: UNK
     Route: 065

REACTIONS (3)
  - Thrombocytopenia [Unknown]
  - COVID-19 [Recovered/Resolved]
  - Anaemia [Unknown]
